FAERS Safety Report 9181581 (Version 1)
Quarter: 2013Q1

REPORT INFORMATION
  Report Type: Spontaneous
  Country: US (occurrence: None)
  Receive Date: 20130321
  Receipt Date: 20130321
  Transmission Date: 20140127
  Serious: Yes (Hospitalization, Disabling)
  Sender: FDA-Public Use
  Company Number: None

PATIENT
  Age: 63 Year
  Sex: Female
  Weight: 54.43 kg

DRUGS (1)
  1. PROGRAF [Suspect]
     Dosage: 3 1/2 MG  MORNING  PILLS?3 MG  EVENING  PILLS?
     Dates: start: 20120219

REACTIONS (28)
  - Cytomegalovirus infection [None]
  - Hyperkalaemia [None]
  - Oedema [None]
  - Hypertension [None]
  - Anaemia [None]
  - Tremor [None]
  - Headache [None]
  - Urinary tract infection [None]
  - Cough [None]
  - Rash [None]
  - Hypomagnesaemia [None]
  - Abdominal pain upper [None]
  - Hyperhidrosis [None]
  - Chills [None]
  - Myalgia [None]
  - Hunger [None]
  - Dyspnoea [None]
  - Visual impairment [None]
  - Paraesthesia [None]
  - Confusional state [None]
  - Diarrhoea [None]
  - Constipation [None]
  - Asthenia [None]
  - Pruritus [None]
  - Burning sensation [None]
  - Somnolence [None]
  - Thirst [None]
  - Pain [None]
